FAERS Safety Report 11650361 (Version 2)
Quarter: 2016Q1

REPORT INFORMATION
  Report Type: Spontaneous
  Country: US (occurrence: US)
  Receive Date: 20151021
  Receipt Date: 20160111
  Transmission Date: 20160525
  Serious: No
  Sender: FDA-Public Use
  Company Number: US-SEATTLE GENETICS-2014SGN01199

PATIENT
  Age: 10 Year
  Sex: Male

DRUGS (1)
  1. ADCETRIS [Suspect]
     Active Substance: BRENTUXIMAB VEDOTIN
     Indication: HODGKIN^S DISEASE

REACTIONS (5)
  - Fatigue [Unknown]
  - Hallucination [Unknown]
  - Off label use [Unknown]
  - Neuralgia [Unknown]
  - Nightmare [Unknown]
